FAERS Safety Report 11590887 (Version 1)
Quarter: 2015Q4

REPORT INFORMATION
  Report Type: Spontaneous
  Country: US (occurrence: US)
  Receive Date: 20151002
  Receipt Date: 20151002
  Transmission Date: 20160304
  Serious: Yes (Hospitalization, Other)
  Sender: FDA-Public Use
  Company Number: ALCN2015US005970

PATIENT
  Age: 73 Year
  Sex: Male

DRUGS (2)
  1. DUREZOL [Suspect]
     Active Substance: DIFLUPREDNATE
     Indication: CORNEAL OEDEMA
     Dosage: 1 GTT, BID
     Route: 047
     Dates: start: 201505
  2. GENTEAL MILD [Suspect]
     Active Substance: HYPROMELLOSE 2910 (4000 MPA.S)
     Indication: DRY EYE
     Dosage: 1 GTT, TID
     Route: 047

REACTIONS (2)
  - Pneumonia [Recovering/Resolving]
  - Product use issue [Not Recovered/Not Resolved]

NARRATIVE: CASE EVENT DATE: 20150907
